FAERS Safety Report 5303413-9 (Version None)
Quarter: 2007Q2

REPORT INFORMATION
  Report Type: 
  Country: None (occurrence: None)
  Receive Date: 20070420
  Receipt Date: 20070409
  Transmission Date: 20071010
  Serious: Yes (Other)
  Sender: FDA-Public Use
  Company Number: JP-ROCHE-492602

PATIENT
  Age: 17 Year
  Sex: Male

DRUGS (4)
  1. TAMIFLU [Suspect]
     Route: 048
     Dates: start: 20030110, end: 20030110
  2. TAMIFLU [Suspect]
     Route: 048
     Dates: start: 20030111, end: 20030115
  3. TAMIFLU [Suspect]
     Route: 048
     Dates: start: 20030116, end: 20030116
  4. ACETAMINOPHEN [Concomitant]
     Dosage: GENERIC REPORTED AS ACETAMINOPHEN. TAKEN AS NEEDED.
     Route: 048

REACTIONS (1)
  - SCHIZOPHRENIFORM DISORDER [None]
